FAERS Safety Report 13789956 (Version 1)
Quarter: 2017Q3

REPORT INFORMATION
  Report Type: Report from Study
  Country: US (occurrence: US)
  Receive Date: 20170725
  Receipt Date: 20170725
  Transmission Date: 20171127
  Serious: Yes (Other)
  Sender: FDA-Public Use
  Company Number: US-JNJFOC-20170717201

PATIENT

DRUGS (1)
  1. REMICADE [Suspect]
     Active Substance: INFLIXIMAB
     Indication: PRODUCT USED FOR UNKNOWN INDICATION
     Route: 042

REACTIONS (6)
  - Upper respiratory tract infection [Unknown]
  - Pharyngeal oedema [Unknown]
  - Swelling face [Unknown]
  - Lymphoma [Unknown]
  - Pneumonia [Unknown]
  - Urticaria [Unknown]
